FAERS Safety Report 8825035 (Version 2)
Quarter: 2013Q1

REPORT INFORMATION
  Report Type: Report from Study
  Country: JP (occurrence: JP)
  Receive Date: 20121004
  Receipt Date: 20130207
  Transmission Date: 20140127
  Serious: Yes (Disabling)
  Sender: FDA-Public Use
  Company Number: JP-ASTRAZENECA-2012SE75886

PATIENT
  Age: 90 Year
  Sex: Female
  Weight: 30 kg

DRUGS (7)
  1. BLOPRESS [Suspect]
     Indication: HYPERTENSION
     Route: 048
     Dates: start: 20120531
  2. BAYASPIRIN [Concomitant]
     Route: 048
  3. MADOPAR [Concomitant]
     Route: 048
  4. SODIUM CHLORIDE [Concomitant]
     Route: 065
  5. MAGMITT [Concomitant]
     Route: 048
  6. LENDORMIN D [Concomitant]
     Route: 048
  7. ISOSORBIDE DINITRATE [Concomitant]
     Route: 062

REACTIONS (1)
  - Cerebral infarction [Recovered/Resolved with Sequelae]
